FAERS Safety Report 8307657-3 (Version None)
Quarter: 2012Q2

REPORT INFORMATION
  Report Type: 
  Country: None (occurrence: None)
  Receive Date: 20120424
  Receipt Date: 20120419
  Transmission Date: 20120825
  Serious: No
  Sender: FDA-Public Use
  Company Number: US-BAYER-2012-039517

PATIENT

DRUGS (2)
  1. ALEVE (CAPLET) [Suspect]
     Indication: MIGRAINE
     Dosage: 3 TABS
     Route: 048
  2. EXCEDRIN ASPIRIN FREE [Concomitant]
     Dosage: 2 TABS

REACTIONS (1)
  - THERAPEUTIC PRODUCT INEFFECTIVE [None]
